FAERS Safety Report 19877337 (Version 1)
Quarter: 2021Q3

REPORT INFORMATION
  Report Type: Spontaneous
  Country: US (occurrence: US)
  Receive Date: 20210923
  Receipt Date: 20210923
  Transmission Date: 20211014
  Serious: Yes (Hospitalization)
  Sender: FDA-Public Use
  Company Number: US-ASTRAZENECA-2021A728274

PATIENT

DRUGS (1)
  1. TAGRISSO [Suspect]
     Active Substance: OSIMERTINIB
     Indication: NON-SMALL CELL LUNG CANCER METASTATIC
     Dosage: FOR ABOUT 1 YEAR
     Route: 048

REACTIONS (3)
  - Ejection fraction decreased [Unknown]
  - Dyspnoea [Unknown]
  - Stress cardiomyopathy [Unknown]
